FAERS Safety Report 4508334-7 (Version None)
Quarter: 2004Q4

REPORT INFORMATION
  Report Type: 
  Country: None (occurrence: None)
  Receive Date: 20041118
  Receipt Date: 20041106
  Transmission Date: 20050328
  Serious: Yes (Death, Life-Threatening, Hospitalization)
  Sender: FDA-Public Use
  Company Number: USA-2004-0017586

PATIENT
  Age: 89 Year
  Sex: Female

DRUGS (16)
  1. MS CONTIN [Suspect]
  2. MOBIC [Suspect]
     Indication: CARDIAC FAILURE CONGESTIVE
     Dosage: 8 MG, DAILY, ORAL
     Route: 048
     Dates: start: 20040811, end: 20041006
  3. FUROSEMIDE [Suspect]
     Indication: CARDIAC FAILURE CONGESTIVE
     Dosage: 40 MG, DAILY, ORAL
     Route: 048
     Dates: start: 20030319, end: 20041004
  4. RAMIPRIL [Suspect]
     Dosage: 3.5 MG, DAILY, ORAL
     Route: 048
     Dates: start: 20040929
  5. ASTRIX   (ASPIRIN) [Concomitant]
  6. FERROGRADUMET   (FERROUS SULFATE) [Concomitant]
  7. FOSAMAX [Concomitant]
  8. OROXINE (LEVOTHYROXINE SODIUM) [Concomitant]
  9. PARACETAMOL [Concomitant]
  10. PERSANTIN [Concomitant]
  11. SOMAC (PANTOPRAZOLE SODIUM) [Concomitant]
  12. ZYLOPRIM [Concomitant]
  13. BRICANYL [Concomitant]
  14. OXIS (FORMOTEROL) [Concomitant]
  15. PULMICORT [Concomitant]
  16. DI-GESIC [Concomitant]

REACTIONS (2)
  - DELIRIUM [None]
  - RENAL FAILURE [None]
